FAERS Safety Report 13515059 (Version 1)
Quarter: 2017Q2

REPORT INFORMATION
  Report Type: Spontaneous
  Country: JP (occurrence: JP)
  Receive Date: 20170504
  Receipt Date: 20170504
  Transmission Date: 20170830
  Serious: Yes (Disabling)
  Sender: FDA-Public Use
  Company Number: PHJP2017JP012217

PATIENT
  Sex: Female

DRUGS (1)
  1. REVOLADE TAB [Suspect]
     Active Substance: ELTROMBOPAG
     Indication: PRODUCT USED FOR UNKNOWN INDICATION
     Dosage: UNK
     Route: 048

REACTIONS (3)
  - Grip strength decreased [Unknown]
  - Cerebral infarction [Recovering/Resolving]
  - Paraesthesia [Unknown]

NARRATIVE: CASE EVENT DATE: 201610
